FAERS Safety Report 9060149 (Version 1)
Quarter: 2013Q1

REPORT INFORMATION
  Report Type: Spontaneous
  Country: US (occurrence: None)
  Receive Date: 20130118
  Receipt Date: 20130118
  Transmission Date: 20140127
  Serious: Yes (Death, Other)
  Sender: FDA-Public Use
  Company Number: AUR-APL-2013-00220

PATIENT
  Age: 37 Year
  Sex: Male

DRUGS (5)
  1. CITALOPRAM (CITALOPRAM) [Suspect]
     Indication: PRODUCT USED FOR UNKNOWN INDICATION
  2. METHADONE [Suspect]
     Route: 048
  3. LORAZEPAM (LORAZEPAM) [Suspect]
  4. COTININE [Suspect]
  5. CAFFEINE [Suspect]

REACTIONS (3)
  - Completed suicide [None]
  - Cardiac arrest [None]
  - Respiratory arrest [None]
